FAERS Safety Report 20159530 (Version 2)
Quarter: 2022Q1

REPORT INFORMATION
  Report Type: Spontaneous
  Country: US (occurrence: US)
  Receive Date: 20211208
  Receipt Date: 20220304
  Transmission Date: 20220424
  Serious: No
  Sender: FDA-Public Use
  Company Number: US-SA-SAC20211202000623

PATIENT
  Age: 16 Year
  Sex: Male
  Weight: 61.678 kg

DRUGS (5)
  1. DUPIXENT [Suspect]
     Active Substance: DUPILUMAB
     Indication: Dermatitis atopic
     Dosage: 300 MG, QOW
     Route: 058
     Dates: start: 202111
  2. AUVI-Q [Concomitant]
     Active Substance: EPINEPHRINE
     Dosage: UNK
  3. SYMBICORT [Concomitant]
     Active Substance: BUDESONIDE\FORMOTEROL FUMARATE DIHYDRATE
     Dosage: UNK
  4. BUDESONIDE [Concomitant]
     Active Substance: BUDESONIDE
     Dosage: UNK
  5. FORMOTEROL [Concomitant]
     Active Substance: FORMOTEROL
     Dosage: UNK

REACTIONS (5)
  - Injection site pain [Unknown]
  - Eczema [Unknown]
  - Rash macular [Unknown]
  - Erythema [Unknown]
  - Therapeutic response decreased [Unknown]
